FAERS Safety Report 9163698 (Version 1)
Quarter: 2013Q1

REPORT INFORMATION
  Report Type: Spontaneous
  Country: AU (occurrence: AU)
  Receive Date: 20130314
  Receipt Date: 20130314
  Transmission Date: 20140127
  Serious: Yes (Other)
  Sender: FDA-Public Use
  Company Number: AU-ELI_LILLY_AND_COMPANY-AU201303002096

PATIENT
  Age: 50 Year
  Sex: Male

DRUGS (2)
  1. ALIMTA [Suspect]
     Indication: LUNG NEOPLASM MALIGNANT
  2. CARBOPLATIN [Concomitant]
     Indication: LUNG CANCER METASTATIC

REACTIONS (1)
  - Pleural effusion [Unknown]
